FAERS Safety Report 7411211-5 (Version None)
Quarter: 2011Q2

REPORT INFORMATION
  Report Type: 
  Country: None (occurrence: None)
  Receive Date: 20110405
  Receipt Date: 20110318
  Transmission Date: 20111010
  Serious: Yes (Hospitalization)
  Sender: FDA-Public Use
  Company Number: 2011AP000488

PATIENT
  Age: 57 Year
  Sex: Female

DRUGS (4)
  1. PROCHLORPERAZINE MALEATE [Concomitant]
  2. APO-LEVETIRACETAM (LEVETIRACETAM) [Suspect]
     Indication: CONVULSION
     Dosage: 1 TAB; BID PO, 1 TAB; TAB; PO; BID
     Route: 048
     Dates: start: 20100820
  3. APO-LEVETIRACETAM (LEVETIRACETAM) [Suspect]
     Indication: CONVULSION
     Dosage: 1 TAB; BID PO, 1 TAB; TAB; PO; BID
     Route: 048
     Dates: start: 20100820
  4. CLOBAZAM (CLOBAZAM) [Concomitant]

REACTIONS (2)
  - CONVULSION [None]
  - PRODUCT SUBSTITUTION ISSUE [None]
